FAERS Safety Report 20581207 (Version 1)
Quarter: 2022Q1

REPORT INFORMATION
  Report Type: Spontaneous
  Country: AT (occurrence: AT)
  Receive Date: 20220311
  Receipt Date: 20220311
  Transmission Date: 20220423
  Serious: Yes (Other)
  Sender: FDA-Public Use
  Company Number: AT-AMGEN-AUTSP2022042122

PATIENT
  Age: 47 Year
  Sex: Female

DRUGS (7)
  1. OTEZLA [Suspect]
     Active Substance: APREMILAST
     Indication: Psoriasis
     Dosage: UNK
     Route: 065
     Dates: start: 2015
  2. CORTISONE ACETATE [Concomitant]
     Active Substance: CORTISONE ACETATE
  3. DESLORATADINE [Concomitant]
     Active Substance: DESLORATADINE
  4. CRESTOR [Concomitant]
     Active Substance: ROSUVASTATIN CALCIUM
  5. SIMPONI [Concomitant]
     Active Substance: GOLIMUMAB
  6. STELARA [Concomitant]
     Active Substance: USTEKINUMAB
  7. METHOTREXATE [Concomitant]
     Active Substance: METHOTREXATE

REACTIONS (3)
  - Marginal zone lymphoma [Unknown]
  - Pruritus [Unknown]
  - Urticaria [Unknown]
